FAERS Safety Report 15887958 (Version 1)
Quarter: 2019Q1

REPORT INFORMATION
  Report Type: Spontaneous
  Country: US (occurrence: US)
  Receive Date: 20190130
  Receipt Date: 20190130
  Transmission Date: 20190417
  Serious: No
  Sender: FDA-Public Use
  Company Number: US-PFIZER INC-2019038394

PATIENT
  Age: 49 Year
  Sex: Female

DRUGS (1)
  1. GABAPENTIN. [Suspect]
     Active Substance: GABAPENTIN
     Indication: TETHERED CORD SYNDROME
     Dosage: 300 MG, 3X/DAY
     Route: 048
     Dates: start: 2017, end: 2018

REACTIONS (2)
  - Product use in unapproved indication [Unknown]
  - Oedema peripheral [Recovered/Resolved]

NARRATIVE: CASE EVENT DATE: 2017
